FAERS Safety Report 17593987 (Version 1)
Quarter: 2020Q1

REPORT INFORMATION
  Report Type: Spontaneous
  Country: US (occurrence: US)
  Receive Date: 20200328
  Receipt Date: 20200328
  Transmission Date: 20200409
  Serious: No
  Sender: FDA-Public Use
  Company Number: US-DRREDDYS-USA/USA/20/0120856

PATIENT
  Sex: Female

DRUGS (1)
  1. IBANDRONATE SODIUM TABLETS 150 MG [Suspect]
     Active Substance: IBANDRONATE SODIUM
     Indication: PRODUCT USED FOR UNKNOWN INDICATION
     Route: 048
     Dates: start: 20200301

REACTIONS (5)
  - Lymph node pain [Unknown]
  - Myalgia [Unknown]
  - Musculoskeletal discomfort [Unknown]
  - Back pain [Unknown]
  - Influenza like illness [Unknown]

NARRATIVE: CASE EVENT DATE: 20200301
